FAERS Safety Report 17514596 (Version 2)
Quarter: 2020Q2

REPORT INFORMATION
  Report Type: Report from Study
  Country: None (occurrence: US)
  Receive Date: 20200309
  Receipt Date: 20200520
  Transmission Date: 20200713
  Serious: Yes (Other)
  Sender: FDA-Public Use
  Company Number: US-ABBVIE-20K-163-3305267-00

PATIENT
  Age: 60 Year
  Sex: Female
  Weight: 146.19 kg

DRUGS (8)
  1. RIFAMPIN. [Concomitant]
     Active Substance: RIFAMPIN
     Indication: BACTERIAL INFECTION
     Dates: start: 20190504
  2. METRONIDAZOLE. [Concomitant]
     Active Substance: METRONIDAZOLE
     Indication: SKIN DISORDER
     Dosage: APPLY TO FACE AREA 1 OR 2 TIMES A DAY WAIT 15 MIN, TWICE DAILY
     Route: 061
     Dates: start: 20190506
  3. DICLOFENAC SODIUM. [Concomitant]
     Active Substance: DICLOFENAC SODIUM
     Indication: ARTHRALGIA
     Dosage: APPLY 1 GRAM 4 TIMES DAY
  4. HUMIRA [Suspect]
     Active Substance: ADALIMUMAB
     Indication: HIDRADENITIS
     Route: 058
     Dates: start: 20181129, end: 2020
  5. OZEMPIC [Concomitant]
     Active Substance: SEMAGLUTIDE
     Indication: BLOOD GLUCOSE INCREASED
     Dates: start: 20190212
  6. HUMIRA [Suspect]
     Active Substance: ADALIMUMAB
     Route: 058
     Dates: start: 2020
  7. OZEMPIC [Concomitant]
     Active Substance: SEMAGLUTIDE
  8. CICLOPIROX. [Concomitant]
     Active Substance: CICLOPIROX
     Indication: ONYCHOMYCOSIS
     Dosage: DAILY

REACTIONS (1)
  - Systemic lupus erythematosus [Not Recovered/Not Resolved]

NARRATIVE: CASE EVENT DATE: 20200123
